FAERS Safety Report 15728616 (Version 1)
Quarter: 2018Q4

REPORT INFORMATION
  Report Type: Other
  Country: DE (occurrence: DE)
  Receive Date: 20181217
  Receipt Date: 20181217
  Transmission Date: 20190205
  Serious: Yes (Other)
  Sender: FDA-Public Use
  Company Number: DE-P+ L DEVELOPMENTS OF NEWYORK CORPORATION-2060226

PATIENT

DRUGS (1)
  1. ZOLMITRIPTAN. [Suspect]
     Active Substance: ZOLMITRIPTAN
     Indication: FOETAL EXPOSURE DURING PREGNANCY
     Route: 065

REACTIONS (3)
  - Microphthalmos [Unknown]
  - Foetal exposure during pregnancy [Unknown]
  - Cataract congenital [Unknown]
